FAERS Safety Report 9863257 (Version 1)
Quarter: 2014Q1

REPORT INFORMATION
  Report Type: Spontaneous
  Country: US (occurrence: US)
  Receive Date: 20140203
  Receipt Date: 20140203
  Transmission Date: 20141002
  Serious: No
  Sender: FDA-Public Use
  Company Number: US-TARO-2013P1010533

PATIENT
  Sex: Female

DRUGS (2)
  1. NYSTATIN + TRIAMCINOLONE ACETONIDE CREAM USP [Suspect]
     Indication: VULVOVAGINAL DISCOMFORT
     Route: 061
     Dates: start: 2009
  2. NYSTATIN + TRIAMCINOLONE ACETONIDE CREAM USP [Suspect]
     Indication: PSORIASIS
     Route: 061
     Dates: start: 2009

REACTIONS (2)
  - Skin disorder [Unknown]
  - Off label use [Not Recovered/Not Resolved]
